FAERS Safety Report 20205527 (Version 2)
Quarter: 2021Q4

REPORT INFORMATION
  Report Type: Report from Study
  Country: EG (occurrence: EG)
  Receive Date: 20211220
  Receipt Date: 20211224
  Transmission Date: 20220304
  Serious: Yes (Other)
  Sender: FDA-Public Use
  Company Number: EG-NOVARTISPH-NVSC2021EG286996

PATIENT
  Age: 4 Year
  Sex: Female

DRUGS (2)
  1. OMNITROPE [Suspect]
     Active Substance: SOMATROPIN
     Indication: Growth hormone deficiency
     Dosage: 0.3 MG, QD
     Route: 058
     Dates: start: 20201107
  2. OMNITROPE [Suspect]
     Active Substance: SOMATROPIN
     Dosage: 0.4 MG, QD
     Route: 058
     Dates: start: 20201107

REACTIONS (6)
  - Haematochezia [Not Recovered/Not Resolved]
  - Constipation [Not Recovered/Not Resolved]
  - Product dose omission issue [Not Recovered/Not Resolved]
  - Medication error [Not Recovered/Not Resolved]
  - Eating disorder [Unknown]
  - Product use issue [Unknown]

NARRATIVE: CASE EVENT DATE: 20211115
